FAERS Safety Report 10350016 (Version 1)
Quarter: 2014Q3

REPORT INFORMATION
  Report Type: Spontaneous
  Country: FR (occurrence: FR)
  Receive Date: 20140730
  Receipt Date: 20140730
  Transmission Date: 20150326
  Serious: Yes (Hospitalization)
  Sender: FDA-Public Use
  Company Number: FR-PFIZER INC-2014208611

PATIENT
  Age: 57 Year
  Sex: Female

DRUGS (10)
  1. MS CONTIN [Suspect]
     Active Substance: MORPHINE SULFATE
     Dosage: 100 MG, 2X/DAY
     Route: 048
     Dates: start: 20130419, end: 20140329
  2. LEVEMIR [Concomitant]
     Active Substance: INSULIN DETEMIR
  3. GLUCOR [Concomitant]
     Active Substance: ACARBOSE
  4. REVLIMID [Suspect]
     Active Substance: LENALIDOMIDE
     Dosage: 25 MG, DAILY
     Route: 048
     Dates: start: 201304, end: 20140329
  5. AMAREL [Concomitant]
     Active Substance: GLIMEPIRIDE
  6. BISOPROLOL [Concomitant]
     Active Substance: BISOPROLOL
  7. LIPANTHYL [Concomitant]
     Active Substance: FENOFIBRATE
  8. DEXAMETHASONE. [Suspect]
     Active Substance: DEXAMETHASONE
     Dosage: 40 MG/KG, 1/WEEK
     Route: 065
     Dates: start: 20130419, end: 20140329
  9. APIDRA [Concomitant]
     Active Substance: INSULIN GLULISINE
  10. LYRICA [Concomitant]
     Active Substance: PREGABALIN

REACTIONS (5)
  - Leukopenia [Recovered/Resolved]
  - Thrombocytopenia [Recovered/Resolved]
  - Hypothyroidism [Recovered/Resolved]
  - Hepatitis [Recovered/Resolved]
  - Renal failure acute [Recovered/Resolved]

NARRATIVE: CASE EVENT DATE: 20140329
